FAERS Safety Report 15453550 (Version 7)
Quarter: 2019Q1

REPORT INFORMATION
  Report Type: Report from Study
  Country: US (occurrence: US)
  Receive Date: 20181001
  Receipt Date: 20190304
  Transmission Date: 20190417
  Serious: Yes (Death, Other)
  Sender: FDA-Public Use
  Company Number: US-ACTELION-A-NJ2018-179266

PATIENT
  Age: 56 Year
  Sex: Male
  Weight: 136.05 kg

DRUGS (9)
  1. TORSEMIDE. [Concomitant]
     Active Substance: TORSEMIDE
     Dosage: 20 MG, BID
     Dates: start: 201808
  2. HCTZ [Concomitant]
     Active Substance: HYDROCHLOROTHIAZIDE
     Dosage: 25 MG, QD
     Dates: start: 201808
  3. POTASSIUM [Concomitant]
     Active Substance: POTASSIUM
     Dosage: 20 MEQ, QD
     Dates: start: 200808
  4. WARFARIN [Concomitant]
     Active Substance: WARFARIN
     Dosage: 6 MG/5 MG ALTERNATING DAILY
     Dates: start: 2008
  5. METOPROLOL. [Concomitant]
     Active Substance: METOPROLOL
     Dosage: 25 MG, BID
     Dates: start: 200808
  6. OPSUMIT [Suspect]
     Active Substance: MACITENTAN
     Indication: PULMONARY ARTERIAL HYPERTENSION
     Dosage: 10 MG, QD
     Route: 048
     Dates: start: 201809
  7. METFORMIN [Concomitant]
     Active Substance: METFORMIN HYDROCHLORIDE
     Dosage: 1000 MG, BID
  8. TORSEMIDE. [Concomitant]
     Active Substance: TORSEMIDE
     Dosage: 2 ADDITIONAL TABLETS IN THE EVENING
  9. ADEMPAS [Concomitant]
     Active Substance: RIOCIGUAT

REACTIONS (21)
  - Pulmonary embolism [Unknown]
  - Weight increased [Unknown]
  - Temperature intolerance [Recovered/Resolved]
  - Wound [Recovered/Resolved]
  - Blister rupture [Unknown]
  - Faeces hard [Recovered/Resolved]
  - Pallor [Recovering/Resolving]
  - Headache [Unknown]
  - Death [Fatal]
  - Dyspnoea [Unknown]
  - Condition aggravated [Unknown]
  - Coagulopathy [Unknown]
  - Joint swelling [Recovering/Resolving]
  - Fatigue [Not Recovered/Not Resolved]
  - Heat stroke [Unknown]
  - Fluid retention [Unknown]
  - Muscle spasms [Recovered/Resolved]
  - Peripheral swelling [Unknown]
  - Dizziness [Unknown]
  - Constipation [Recovered/Resolved]
  - Abdominal distension [Unknown]

NARRATIVE: CASE EVENT DATE: 2018
